FAERS Safety Report 20655114 (Version 1)
Quarter: 2022Q1

REPORT INFORMATION
  Report Type: Spontaneous
  Country: US (occurrence: US)
  Receive Date: 20220330
  Receipt Date: 20220330
  Transmission Date: 20220424
  Serious: No
  Sender: FDA-Public Use
  Company Number: US-SANOFI-01028874

PATIENT
  Age: 15 Year
  Sex: Female
  Weight: 48 kg

DRUGS (2)
  1. DUPIXENT [Suspect]
     Active Substance: DUPILUMAB
     Indication: Dermatitis atopic
     Dosage: 400 MG, 1X
     Dates: start: 202110, end: 202110
  2. DUPIXENT [Suspect]
     Active Substance: DUPILUMAB
     Dosage: 200 MG, QOW

REACTIONS (4)
  - Lacrimation increased [Recovered/Resolved]
  - Foreign body sensation in eyes [Recovered/Resolved]
  - Lip erythema [Unknown]
  - Chapped lips [Unknown]
